FAERS Safety Report 6196758-4 (Version None)
Quarter: 2009Q2

REPORT INFORMATION
  Report Type: 
  Country: None (occurrence: None)
  Receive Date: 20090518
  Receipt Date: 20090518
  Transmission Date: 20091009
  Serious: Yes (Other)
  Sender: FDA-Public Use
  Company Number: None

PATIENT
  Age: 6 Year
  Sex: Male
  Weight: 22.2263 kg

DRUGS (2)
  1. CHILDREN'S ACETAMINOPHEN, 4 160 MG PER 5 ML RITE AID [Suspect]
     Indication: LYMPHADENOPATHY
     Dosage: 2 TSP PO
     Route: 048
     Dates: start: 20090513, end: 20090515
  2. CHILDREN'S IBUPROFEN [Suspect]
     Dosage: 2 TSP PO
     Route: 048

REACTIONS (3)
  - CIRCUMSTANCE OR INFORMATION CAPABLE OF LEADING TO MEDICATION ERROR [None]
  - PRODUCT QUALITY ISSUE [None]
  - PRODUCT SUBSTITUTION ISSUE [None]
